FAERS Safety Report 16023660 (Version 1)
Quarter: 2019Q1

REPORT INFORMATION
  Report Type: Spontaneous
  Country: US (occurrence: US)
  Receive Date: 20190301
  Receipt Date: 20190301
  Transmission Date: 20190418
  Serious: Yes (Life-Threatening, Other)
  Sender: FDA-Public Use
  Company Number: US-ABBVIE-19S-163-2686439-00

PATIENT
  Sex: Female
  Weight: 76.2 kg

DRUGS (6)
  1. PREDNISONE. [Suspect]
     Active Substance: PREDNISONE
     Indication: HEADACHE
     Route: 065
     Dates: start: 2016
  2. PREDNISONE. [Suspect]
     Active Substance: PREDNISONE
     Indication: VOMITING
  3. WARFARIN [Concomitant]
     Active Substance: WARFARIN
     Indication: THROMBOSIS
  4. MORPHINE [Suspect]
     Active Substance: MORPHINE
     Indication: PAIN
     Route: 065
     Dates: start: 201405, end: 2016
  5. GABAPENTIN. [Suspect]
     Active Substance: GABAPENTIN
     Indication: PAIN
     Route: 048
     Dates: start: 2016
  6. VICODIN [Suspect]
     Active Substance: ACETAMINOPHEN\HYDROCODONE BITARTRATE
     Indication: PAIN
     Route: 065
     Dates: start: 201408, end: 2016

REACTIONS (15)
  - Sinus disorder [Unknown]
  - Headache [Unknown]
  - Anxiety [Unknown]
  - Fear of disease [Unknown]
  - Palpitations [Not Recovered/Not Resolved]
  - Nerve injury [Unknown]
  - Musculoskeletal chest pain [Not Recovered/Not Resolved]
  - Vomiting [Unknown]
  - Drug withdrawal syndrome [Unknown]
  - Bedridden [Recovered/Resolved]
  - Headache [Unknown]
  - Thrombosis [Recovered/Resolved]
  - Pulmonary thrombosis [Recovered/Resolved]
  - Night sweats [Unknown]
  - Night sweats [Unknown]

NARRATIVE: CASE EVENT DATE: 2014
